FAERS Safety Report 14245325 (Version 1)
Quarter: 2017Q4

REPORT INFORMATION
  Report Type: Spontaneous
  Country: US (occurrence: US)
  Receive Date: 20171202
  Receipt Date: 20171202
  Transmission Date: 20180321
  Serious: No
  Sender: FDA-Public Use
  Company Number: US-ENDO PHARMACEUTICALS INC-2017-003569

PATIENT
  Age: 54 Year
  Sex: Male
  Weight: 89.34 kg

DRUGS (4)
  1. ASPIRIN EC LOW DOSE 81 MG [Concomitant]
     Active Substance: ASPIRIN
     Indication: CARDIOVASCULAR EVENT PROPHYLAXIS
  2. XIAFLEX [Suspect]
     Active Substance: COLLAGENASE CLOSTRIDIUM HISTOLYTICUM
     Indication: PEYRONIE^S DISEASE
     Dosage: FIRST CYCLE OF 2 INJECTIONS IN THE PENIS
     Route: 026
     Dates: start: 201512
  3. XIAFLEX [Suspect]
     Active Substance: COLLAGENASE CLOSTRIDIUM HISTOLYTICUM
     Dosage: SECOND AND THIRD CYCLES OF 2 INJECTIONS IN THE PENIS
     Route: 026
     Dates: start: 2016
  4. XIAFLEX [Suspect]
     Active Substance: COLLAGENASE CLOSTRIDIUM HISTOLYTICUM
     Dosage: FOURTH CYCLE OF 2 INJECTIONS IN THE PENIS
     Route: 026
     Dates: start: 201608

REACTIONS (3)
  - Balanoposthitis [Recovered/Resolved]
  - Skin discolouration [Not Recovered/Not Resolved]
  - Drug ineffective [Unknown]

NARRATIVE: CASE EVENT DATE: 201512
